FAERS Safety Report 6213223-6 (Version None)
Quarter: 2009Q2

REPORT INFORMATION
  Report Type: 
  Country: None (occurrence: None)
  Receive Date: 20090529
  Receipt Date: 20080623
  Transmission Date: 20091009
  Serious: Yes (Hospitalization, Other)
  Sender: FDA-Public Use
  Company Number: WAES 0806USA08072

PATIENT
  Sex: Male
  Weight: 103.4201 kg

DRUGS (7)
  1. EMEND [Suspect]
     Indication: SMALL CELL LUNG CANCER STAGE UNSPECIFIED
     Dosage: 125 MG/PO
     Route: 048
     Dates: start: 20070116, end: 20080320
  2. COMPAZINE [Concomitant]
  3. LEXAPRO [Concomitant]
  4. NEULASTA [Concomitant]
  5. PROTONIX [Concomitant]
  6. CARBOPLATIN [Concomitant]
  7. ETOPOSIDE [Concomitant]

REACTIONS (1)
  - ANGIOEDEMA [None]
